FAERS Safety Report 12453693 (Version 1)
Quarter: 2016Q2

REPORT INFORMATION
  Report Type: Spontaneous
  Country: US (occurrence: US)
  Receive Date: 20160609
  Receipt Date: 20160609
  Transmission Date: 20160815
  Serious: No
  Sender: FDA-Public Use
  Company Number: PHEH2016US014235

PATIENT
  Sex: Male

DRUGS (1)
  1. AFINITOR [Suspect]
     Active Substance: EVEROLIMUS
     Indication: THYROID CANCER
     Dosage: 10 MG, QOD (EVERY OTHER DAY)
     Route: 048
     Dates: start: 20160520

REACTIONS (2)
  - Fatigue [Unknown]
  - Product use issue [Unknown]
